FAERS Safety Report 20410945 (Version 1)
Quarter: 2022Q1

REPORT INFORMATION
  Report Type: Spontaneous
  Country: US (occurrence: US)
  Receive Date: 20220201
  Receipt Date: 20220201
  Transmission Date: 20220423
  Serious: Yes (Life-Threatening, Hospitalization)
  Sender: FDA-Public Use
  Company Number: US-ELI_LILLY_AND_COMPANY-US202201011304

PATIENT

DRUGS (1)
  1. BASAGLAR [Suspect]
     Active Substance: INSULIN GLARGINE
     Indication: Type 2 diabetes mellitus
     Dosage: UNK UNK, UNKNOWN
     Route: 058

REACTIONS (6)
  - Respiratory arrest [Unknown]
  - Nephrolithiasis [Unknown]
  - Abdominal infection [Unknown]
  - Memory impairment [Unknown]
  - Oropharyngeal pain [Unknown]
  - Visual impairment [Unknown]
